FAERS Safety Report 5268086-2 (Version None)
Quarter: 2007Q1

REPORT INFORMATION
  Report Type: 
  Country: None (occurrence: None)
  Receive Date: 20070316
  Receipt Date: 20070316
  Transmission Date: 20070707
  Serious: Yes (Hospitalization)
  Sender: FDA-Public Use
  Company Number: None

PATIENT
  Sex: Male
  Weight: 80.9 kg

DRUGS (2)
  1. ASPIRIN [Suspect]
     Indication: MUSCULOSKELETAL PAIN
     Dosage: 650MG DAILY PO
     Route: 048
  2. ASPIRIN [Suspect]
     Indication: PROPHYLAXIS
     Dosage: 650MG DAILY PO
     Route: 048

REACTIONS (4)
  - ALCOHOL USE [None]
  - ASTHENIA [None]
  - PRESYNCOPE [None]
  - UPPER GASTROINTESTINAL HAEMORRHAGE [None]
